FAERS Safety Report 11198356 (Version 9)
Quarter: 2016Q1

REPORT INFORMATION
  Report Type: Report from Study
  Country: CL (occurrence: CL)
  Receive Date: 20150618
  Receipt Date: 20160315
  Transmission Date: 20160525
  Serious: Yes (Disabling, Other)
  Sender: FDA-Public Use
  Company Number: CL-ROCHE-1522714

PATIENT
  Age: 63 Year
  Sex: Female
  Weight: 64 kg

DRUGS (7)
  1. PARACETAMOL [Concomitant]
     Active Substance: ACETAMINOPHEN
     Indication: PAIN
  2. ENALAPRIL [Concomitant]
     Active Substance: ENALAPRIL
     Indication: HYPERTENSION
     Route: 048
     Dates: start: 2005
  3. GABAPENTIN. [Concomitant]
     Active Substance: GABAPENTIN
     Indication: PAIN
     Route: 065
     Dates: start: 2014
  4. SERTRALINE [Concomitant]
     Active Substance: SERTRALINE HYDROCHLORIDE
     Indication: DEPRESSION
     Route: 048
     Dates: start: 2015
  5. HERCEPTIN [Suspect]
     Active Substance: TRASTUZUMAB
     Indication: BREAST CANCER
     Route: 058
     Dates: start: 20140926
  6. CLONAZEPAM. [Concomitant]
     Active Substance: CLONAZEPAM
     Indication: INSOMNIA
     Route: 048
     Dates: start: 2014
  7. INSULIN [Concomitant]
     Active Substance: INSULIN NOS
     Indication: DIABETES MELLITUS
     Dosage: 6-19 IU
     Route: 058
     Dates: start: 2011

REACTIONS (38)
  - Drug dose omission [Unknown]
  - Haemorrhage [Unknown]
  - Amnesia [Not Recovered/Not Resolved]
  - Dizziness [Not Recovered/Not Resolved]
  - Malaise [Not Recovered/Not Resolved]
  - Anxiety [Not Recovered/Not Resolved]
  - Decreased appetite [Not Recovered/Not Resolved]
  - Swelling [Not Recovered/Not Resolved]
  - Disorientation [Not Recovered/Not Resolved]
  - Pain in extremity [Recovered/Resolved]
  - Pain [Not Recovered/Not Resolved]
  - Impaired healing [Unknown]
  - Insomnia [Not Recovered/Not Resolved]
  - Gait disturbance [Not Recovered/Not Resolved]
  - Somnolence [Not Recovered/Not Resolved]
  - Fatigue [Not Recovered/Not Resolved]
  - Metastases to bone [Not Recovered/Not Resolved]
  - Depressed mood [Not Recovered/Not Resolved]
  - Dizziness [Not Recovered/Not Resolved]
  - Depressed mood [Not Recovered/Not Resolved]
  - Bone pain [Not Recovered/Not Resolved]
  - Contusion [Unknown]
  - Amnesia [Not Recovered/Not Resolved]
  - Visual impairment [Not Recovered/Not Resolved]
  - Fatigue [Unknown]
  - Memory impairment [Not Recovered/Not Resolved]
  - Metastasis [Not Recovered/Not Resolved]
  - Wound [Unknown]
  - Osteoarthritis [Not Recovered/Not Resolved]
  - Arthralgia [Not Recovered/Not Resolved]
  - Fall [Unknown]
  - Headache [Not Recovered/Not Resolved]
  - Pain [Not Recovered/Not Resolved]
  - Bone pain [Not Recovered/Not Resolved]
  - Mental disorder [Not Recovered/Not Resolved]
  - Inflammation [Not Recovered/Not Resolved]
  - Malaise [Not Recovered/Not Resolved]
  - Hypersomnia [Not Recovered/Not Resolved]

NARRATIVE: CASE EVENT DATE: 201501
